FAERS Safety Report 9336788 (Version 2)
Quarter: 2013Q3

REPORT INFORMATION
  Report Type: Spontaneous
  Country: IN (occurrence: IN)
  Receive Date: 20130607
  Receipt Date: 20130722
  Transmission Date: 20140515
  Serious: Yes (Life-Threatening, Hospitalization)
  Sender: FDA-Public Use
  Company Number: PHHY2013IN056821

PATIENT
  Age: 11 Month
  Sex: Male

DRUGS (1)
  1. AMLODIPINE [Suspect]
     Dosage: 15 MG, TID

REACTIONS (14)
  - Cardiac failure congestive [Recovering/Resolving]
  - Prerenal failure [Recovering/Resolving]
  - Pulmonary oedema [Recovering/Resolving]
  - Lethargy [Recovering/Resolving]
  - Heart sounds abnormal [Recovering/Resolving]
  - Toxicity to various agents [Recovering/Resolving]
  - Metabolic acidosis [Unknown]
  - Blood glucose increased [Unknown]
  - Hypotension [Recovering/Resolving]
  - Shock [Recovering/Resolving]
  - Vomiting [Recovering/Resolving]
  - Dyspnoea [Recovering/Resolving]
  - Medication error [Unknown]
  - Accidental overdose [Unknown]
